FAERS Safety Report 4379901-9 (Version None)
Quarter: 2004Q2

REPORT INFORMATION
  Report Type: 
  Country: None (occurrence: None)
  Receive Date: 20040614
  Receipt Date: 20040528
  Transmission Date: 20050107
  Serious: Yes (Other)
  Sender: FDA-Public Use
  Company Number: 2004215800DE

PATIENT

DRUGS (2)
  1. BEXTRA [Suspect]
     Dosage: ORAL
     Route: 048
  2. PILOCARPINE(PILOCARPINE) [Suspect]
     Indication: GLAUCOMA
     Dosage: EYE DROPS

REACTIONS (3)
  - CONDITION AGGRAVATED [None]
  - DRUG INTERACTION [None]
  - GLAUCOMA [None]
